FAERS Safety Report 20875551 (Version 2)
Quarter: 2022Q2

REPORT INFORMATION
  Report Type: Spontaneous
  Country: US (occurrence: US)
  Receive Date: 20220526
  Receipt Date: 20220601
  Transmission Date: 20220721
  Serious: Yes (Hospitalization, Other)
  Sender: FDA-Public Use
  Company Number: US-AMGEN-USASP2022086725

PATIENT
  Sex: Female

DRUGS (1)
  1. SENSIPAR [Suspect]
     Active Substance: CINACALCET HYDROCHLORIDE
     Indication: Hyperparathyroidism primary
     Dosage: UNK
     Route: 048

REACTIONS (6)
  - Bradycardia [Unknown]
  - Abortion induced [Unknown]
  - Hypercalcaemia [Unknown]
  - Vomiting [Unknown]
  - Nausea [Unknown]
  - Maternal exposure during pregnancy [Unknown]
